FAERS Safety Report 4925045-4 (Version None)
Quarter: 2006Q1

REPORT INFORMATION
  Report Type: 
  Country: None (occurrence: None)
  Receive Date: 20060222
  Receipt Date: 20060210
  Transmission Date: 20060701
  Serious: No
  Sender: FDA-Public Use
  Company Number: TPA2006A00260

PATIENT
  Age: 40 Year
  Sex: Female
  Weight: 71.6683 kg

DRUGS (4)
  1. ROZEREM [Suspect]
     Indication: INSOMNIA
     Dosage: SEE IMAGE
     Route: 048
     Dates: start: 20060208, end: 20060208
  2. ROZEREM [Suspect]
     Indication: INSOMNIA
     Dosage: SEE IMAGE
     Route: 048
     Dates: start: 20060209
  3. GLUCOPHAGE XR [Concomitant]
  4. DEMULEN (OVULEN 50) [Concomitant]

REACTIONS (1)
  - DRUG INEFFECTIVE [None]
